FAERS Safety Report 8507713-0 (Version None)
Quarter: 2012Q2

REPORT INFORMATION
  Report Type: 
  Country: None (occurrence: None)
  Receive Date: 20120405
  Receipt Date: 20090814
  Transmission Date: 20120825
  Serious: Yes (Disabling)
  Sender: FDA-Public Use
  Company Number: PHEH2009US08768

PATIENT
  Age: 63 Year
  Sex: Female
  Weight: 105 kg

DRUGS (9)
  1. RECLAST [Suspect]
     Indication: OSTEOPOROSIS
     Dosage: 5MG/100ML, INFUSION
     Dates: start: 20090501
  2. LAMICTAL [Concomitant]
  3. PRILOSEC [Concomitant]
  4. SKELAXIN [Concomitant]
  5. KLONOPIN [Concomitant]
  6. AMITRIOTYLINE (AMITRIPTYLINE) [Concomitant]
  7. TRAMADOL HYDROCHLORIDE [Concomitant]
  8. FLUOXETINE [Concomitant]
  9. ZIPRASIDONE HYDROCHLORIDE (GEODON) [Concomitant]

REACTIONS (4)
  - NECK PAIN [None]
  - BACK PAIN [None]
  - MUSCULOSKELETAL PAIN [None]
  - PAIN IN EXTREMITY [None]
